FAERS Safety Report 20505407 (Version 1)
Quarter: 2022Q1

REPORT INFORMATION
  Report Type: Other
  Country: MX (occurrence: None)
  Receive Date: 20220223
  Receipt Date: 20220223
  Transmission Date: 20220423
  Serious: Yes (Other)
  Sender: FDA-Public Use
  Company Number: MX-ROCHE-3034545

PATIENT
  Sex: Female

DRUGS (2)
  1. TRASTUZUMAB [Suspect]
     Active Substance: TRASTUZUMAB
     Indication: HER2 positive breast cancer
     Route: 065
  2. EPIRUBICIN [Concomitant]
     Active Substance: EPIRUBICIN

REACTIONS (2)
  - Cardiotoxicity [Unknown]
  - Cardiac failure [Unknown]
